FAERS Safety Report 7707224-6 (Version None)
Quarter: 2011Q3

REPORT INFORMATION
  Report Type: 
  Country: None (occurrence: None)
  Receive Date: 20110824
  Receipt Date: 20110815
  Transmission Date: 20111222
  Serious: Yes (Hospitalization)
  Sender: FDA-Public Use
  Company Number: PHEH2011US00581

PATIENT
  Sex: Male

DRUGS (1)
  1. EXJADE [Suspect]
     Dosage: 1750 MG, QD
     Route: 048

REACTIONS (4)
  - PNEUMONIA [None]
  - PYREXIA [None]
  - HAEMORRHAGE [None]
  - DEVICE RELATED INFECTION [None]
